FAERS Safety Report 8315535-9 (Version None)
Quarter: 2012Q2

REPORT INFORMATION
  Report Type: 
  Country: None (occurrence: None)
  Receive Date: 20120426
  Receipt Date: 20120423
  Transmission Date: 20120825
  Serious: Yes (Other)
  Sender: FDA-Public Use
  Company Number: US-PFIZER INC-2012100491

PATIENT
  Sex: Female
  Weight: 111 kg

DRUGS (10)
  1. OXYCODONE [Concomitant]
     Indication: PAIN
     Dosage: 60 MG, EVERY 4 HRS
     Route: 048
  2. LYRICA [Suspect]
     Indication: NERVE INJURY
     Dosage: 75 MG, 3X/DAY
  3. OXYMORPHONE HYDROCHLORIDE [Concomitant]
     Indication: PAIN
     Dosage: 40 MG, 2X/DAY
  4. LYRICA [Suspect]
     Indication: HYPOAESTHESIA
  5. LYRICA [Suspect]
     Indication: OSTEOARTHRITIS
  6. LYRICA [Suspect]
     Indication: NEURALGIA
  7. CYMBALTA [Concomitant]
     Indication: PAIN
     Dosage: UNK
  8. LYRICA [Suspect]
     Indication: INTERVERTEBRAL DISC DISORDER
  9. LYRICA [Suspect]
     Indication: MUSCULAR WEAKNESS
  10. LYRICA [Suspect]
     Indication: SPINAL COLUMN STENOSIS

REACTIONS (2)
  - SPINAL DISORDER [None]
  - NEURALGIA [None]
